FAERS Safety Report 18907281 (Version 1)
Quarter: 2021Q1

REPORT INFORMATION
  Report Type: Spontaneous
  Country: US (occurrence: US)
  Receive Date: 20210218
  Receipt Date: 20210218
  Transmission Date: 20210420
  Serious: No
  Sender: FDA-Public Use
  Company Number: US-CIPLA LTD.-2020US09322

PATIENT

DRUGS (3)
  1. DICLOFENAC [Suspect]
     Active Substance: DICLOFENAC
     Indication: MUSCLE SPASMS
  2. DICLOFENAC [Suspect]
     Active Substance: DICLOFENAC
     Indication: ARTHRALGIA
     Dosage: UNK, 2 G IN THE EFFECTED AREA
     Route: 065
     Dates: start: 202010
  3. DICLOFENAC [Suspect]
     Active Substance: DICLOFENAC
     Indication: MUSCLE STRAIN

REACTIONS (5)
  - Dizziness [Not Recovered/Not Resolved]
  - Off label use [Unknown]
  - Product packaging issue [Unknown]
  - Product use in unapproved indication [Unknown]
  - Vertigo [Not Recovered/Not Resolved]

NARRATIVE: CASE EVENT DATE: 202010
